FAERS Safety Report 8774482 (Version 2)
Quarter: 2012Q4

REPORT INFORMATION
  Report Type: 
  Country: US (occurrence: US)
  Receive Date: 20120907
  Receipt Date: 20121019
  Transmission Date: 20130627
  Serious: No
  Sender: FDA-Public Use
  Company Number: US-BIOGENIDEC-2012BI034885

PATIENT
  Age: 44 Year
  Sex: Female

DRUGS (3)
  1. TYSABRI [Suspect]
     Indication: MULTIPLE SCLEROSIS
     Route: 042
     Dates: start: 20090522, end: 20091016
  2. TYSABRI [Suspect]
     Indication: MULTIPLE SCLEROSIS
     Route: 042
     Dates: start: 20110729, end: 20110729
  3. TYSABRI [Suspect]
     Indication: MULTIPLE SCLEROSIS
     Route: 042
     Dates: start: 20120801, end: 20120829

REACTIONS (14)
  - Lip swelling [Recovered/Resolved]
  - Cold sweat [Not Recovered/Not Resolved]
  - Hyperhidrosis [Not Recovered/Not Resolved]
  - Balance disorder [Recovered/Resolved]
  - Respiratory rate increased [Not Recovered/Not Resolved]
  - Optic neuritis [Unknown]
  - Heart rate increased [Recovered/Resolved]
  - Pain in extremity [Recovered/Resolved]
  - Anxiety [Unknown]
  - Multiple allergies [Recovered/Resolved]
  - Hypersensitivity [Recovered/Resolved]
  - Influenza [Recovered/Resolved]
  - Nasopharyngitis [Recovered/Resolved]
  - Flushing [Not Recovered/Not Resolved]
